FAERS Safety Report 13509617 (Version 2)
Quarter: 2022Q1

REPORT INFORMATION
  Report Type: Spontaneous
  Country: US (occurrence: US)
  Receive Date: 20170503
  Receipt Date: 20220302
  Transmission Date: 20220423
  Serious: No
  Sender: FDA-Public Use
  Company Number: US-SA-2017SA027415

PATIENT
  Age: 72 Year
  Sex: Female
  Weight: 150 kg

DRUGS (22)
  1. PRALUENT [Suspect]
     Active Substance: ALIROCUMAB
     Indication: Blood cholesterol increased
     Dosage: 75 MG,QOW
     Route: 058
     Dates: start: 201611
  2. PRALUENT [Suspect]
     Active Substance: ALIROCUMAB
     Indication: Hypercholesterolaemia
  3. CHLORDIAZEPOXIDE HYDROCHLORIDE;CLIDINIUM BROMIDE [Concomitant]
     Dosage: UNK UNK,QD
  4. OMEPRAZOLE [Concomitant]
     Active Substance: OMEPRAZOLE
     Dosage: 20 MG,QD
  5. ATIVAN [Concomitant]
     Active Substance: LORAZEPAM
     Dosage: .5 MG,HS
  6. NORVASC [Concomitant]
     Active Substance: AMLODIPINE BESYLATE
     Dosage: UNK
  7. LOSARTAN POTASSIUM [Concomitant]
     Active Substance: LOSARTAN POTASSIUM
     Dosage: 50 MG,HS
  8. KRILL OIL [Concomitant]
     Active Substance: DIETARY SUPPLEMENT\KRILL OIL
     Dosage: UNK
  9. ASPIRIN [Concomitant]
     Active Substance: ASPIRIN
     Dosage: UNK
  10. UBIDECARENONE [Concomitant]
     Active Substance: UBIDECARENONE
     Dosage: 100 MG,QD
  11. ALLEGRA [FEXOFENADINE HYDROCHLORIDE] [Concomitant]
     Dosage: UNK UNK,PRN
  12. SYMBICORT [Concomitant]
     Active Substance: BUDESONIDE\FORMOTEROL FUMARATE DIHYDRATE
     Dosage: 10.2 DF,UNK
  13. VENTOLIN [Concomitant]
     Active Substance: ALBUTEROL SULFATE
     Dosage: UNK
  14. LEVALBUTEROL [Concomitant]
     Active Substance: LEVALBUTEROL
     Dosage: UNK UNK,PRN
  15. BIOTIN [Concomitant]
     Active Substance: BIOTIN
     Dosage: UNK
  16. VITAMIN D3 [Concomitant]
     Active Substance: CHOLECALCIFEROL
     Dosage: UNK
  17. CALCIUM [Concomitant]
     Active Substance: CALCIUM
     Dosage: UNK
  18. BACLOFEN [Concomitant]
     Active Substance: BACLOFEN
     Dosage: 10 MG,HS
  19. LIBRAX [Concomitant]
     Active Substance: CHLORDIAZEPOXIDE HYDROCHLORIDE\CLIDINIUM BROMIDE
     Indication: Product used for unknown indication
  20. ALLEGRA [LEVOCETIRIZINE DIHYDROCHLORIDE] [Concomitant]
     Indication: Product used for unknown indication
  21. ALBUTEROL SULFATE [Concomitant]
     Active Substance: ALBUTEROL SULFATE
     Indication: Product used for unknown indication
  22. CALCIUM\MAGNESIUM [Concomitant]
     Active Substance: CALCIUM\MAGNESIUM
     Indication: Product used for unknown indication

REACTIONS (2)
  - Skin discolouration [Recovered/Resolved]
  - Cough [Unknown]

NARRATIVE: CASE EVENT DATE: 20170201
